FAERS Safety Report 19447717 (Version 1)
Quarter: 2021Q2

REPORT INFORMATION
  Report Type: Spontaneous
  Country: US (occurrence: US)
  Receive Date: 20210622
  Receipt Date: 20210622
  Transmission Date: 20210717
  Serious: Yes (Hospitalization)
  Sender: FDA-Public Use
  Company Number: None

PATIENT
  Age: 48 Year
  Sex: Female

DRUGS (11)
  1. ZYVOX [Concomitant]
     Active Substance: LINEZOLID
  2. HYDRALAZINE [Concomitant]
     Active Substance: HYDRALAZINE HYDROCHLORIDE
  3. AMBRISENTAN [Suspect]
     Active Substance: AMBRISENTAN
     Indication: PULMONARY ARTERIAL HYPERTENSION
     Route: 048
  4. ZOVIRAX [Concomitant]
     Active Substance: ACYCLOVIR
  5. LIPITOR [Concomitant]
     Active Substance: ATORVASTATIN CALCIUM
  6. FUROSEMIDE. [Concomitant]
     Active Substance: FUROSEMIDE
  7. COREG [Concomitant]
     Active Substance: CARVEDILOL
  8. NITROGLYCERIN. [Concomitant]
     Active Substance: NITROGLYCERIN
  9. COZAAR [Concomitant]
     Active Substance: LOSARTAN POTASSIUM
  10. CLONIDINE. [Concomitant]
     Active Substance: CLONIDINE
  11. BUMETANIDE. [Concomitant]
     Active Substance: BUMETANIDE

REACTIONS (3)
  - Dyspnoea [None]
  - Pulmonary oedema [None]
  - Oedema [None]

NARRATIVE: CASE EVENT DATE: 20210622
